FAERS Safety Report 8777589 (Version 2)
Quarter: 2013Q2

REPORT INFORMATION
  Report Type: Spontaneous
  Country: BR (occurrence: BR)
  Receive Date: 20120911
  Receipt Date: 20130403
  Transmission Date: 20140414
  Serious: Yes (Hospitalization, Other)
  Sender: FDA-Public Use
  Company Number: PHHY2012BR078843

PATIENT
  Age: 73 Year
  Sex: Female

DRUGS (6)
  1. TRILEPTAL [Suspect]
     Indication: CONVULSION
     Dosage: 300 MG, BID (2 DF, DAILY)
     Route: 048
     Dates: start: 201209, end: 201211
  2. TRILEPTAL [Suspect]
     Dosage: 600 MG, BID (2 DF, DAILY)
     Route: 048
  3. GLICAMIN//GLIBENCLAMIDE [Concomitant]
     Indication: BLOOD PRESSURE INCREASED
     Dosage: 2 DF, DAILY
     Route: 048
  4. IMIPRAMINE [Concomitant]
     Indication: BLOOD CHOLESTEROL INCREASED
     Dosage: 1 DF, DAILY
     Route: 048
  5. AAS [Concomitant]
     Indication: BLOOD VISCOSITY INCREASED
     Dosage: 1 DF, DAILY
     Route: 048
  6. SINVASTAMED [Concomitant]
     Dosage: 1 DF, DAILY
     Route: 048

REACTIONS (6)
  - Cognitive disorder [Recovering/Resolving]
  - Cerebrovascular accident [Recovering/Resolving]
  - Loss of consciousness [Recovering/Resolving]
  - Syncope [Recovering/Resolving]
  - Speech disorder [Recovered/Resolved]
  - Hypokinesia [Recovering/Resolving]
